FAERS Safety Report 17838507 (Version 2)
Quarter: 2020Q2

REPORT INFORMATION
  Report Type: Report from Study
  Country: MX (occurrence: MX)
  Receive Date: 20200528
  Receipt Date: 20200609
  Transmission Date: 20200714
  Serious: Yes (Other)
  Sender: FDA-Public Use
  Company Number: NVSC2020MX145251

PATIENT
  Age: 58 Year
  Sex: Female
  Weight: 70 kg

DRUGS (2)
  1. SANDIMMUN NEORAL [Suspect]
     Active Substance: CYCLOSPORINE
     Indication: APLASTIC ANAEMIA
     Dosage: 3 DF, Q12H
     Route: 048
     Dates: start: 20200510
  2. REVOLADE [Suspect]
     Active Substance: ELTROMBOPAG
     Indication: APLASTIC ANAEMIA
     Dosage: 3 DF, QD
     Route: 048
     Dates: start: 20200510

REACTIONS (9)
  - Product use in unapproved indication [Unknown]
  - Kidney infection [Recovered/Resolved]
  - Hepatitis [Recovering/Resolving]
  - Blood potassium decreased [Recovered/Resolved]
  - Blister infected [Recovering/Resolving]
  - Urticaria [Unknown]
  - Constipation [Unknown]
  - Upper respiratory fungal infection [Recovering/Resolving]
  - Product dose omission [Unknown]

NARRATIVE: CASE EVENT DATE: 20200511
